FAERS Safety Report 7290603-1 (Version None)
Quarter: 2011Q1

REPORT INFORMATION
  Report Type: 
  Country: None (occurrence: None)
  Receive Date: 20110209
  Receipt Date: 20110209
  Transmission Date: 20110831
  Serious: No
  Sender: FDA-Public Use
  Company Number: None

PATIENT
  Sex: Male
  Weight: 81.8 kg

DRUGS (1)
  1. ZOSYN [Suspect]
     Indication: LUNG INFECTION PSEUDOMONAL
     Dosage: 4.5GM IN STERILE WATER @ 90MG/ML Q6HR IV BY TUNNELED CATHETER
     Route: 042
     Dates: start: 20110107, end: 20110131

REACTIONS (3)
  - MEDICAL DEVICE COMPLICATION [None]
  - PRODUCT DEPOSIT [None]
  - PRODUCT QUALITY ISSUE [None]
